FAERS Safety Report 4303157-6 (Version None)
Quarter: 2004Q1

REPORT INFORMATION
  Report Type: 
  Country: None (occurrence: None)
  Receive Date: 20040223
  Receipt Date: 20040209
  Transmission Date: 20041129
  Serious: Yes (Hospitalization)
  Sender: FDA-Public Use
  Company Number: 165805

PATIENT
  Age: 49 Year
  Sex: Female
  Weight: 64.8644 kg

DRUGS (6)
  1. AVONEX [Suspect]
     Indication: MULTIPLE SCLEROSIS
     Dosage: 30 MCG QW IM
     Route: 030
     Dates: start: 19961001, end: 19980401
  2. CALAN [Concomitant]
  3. PREDNISONE [Concomitant]
  4. IV SOLU-MEDROL [Concomitant]
  5. OXYBUTYNIN [Concomitant]
  6. SOL-CORTEF [Concomitant]

REACTIONS (16)
  - ANAEMIA [None]
  - ASTHENIA [None]
  - CARDIOMYOPATHY [None]
  - CHEST PAIN [None]
  - CYSTITIS [None]
  - DYSPNOEA [None]
  - FALL [None]
  - FATIGUE [None]
  - HAEMORRHAGE [None]
  - MULTIPLE SCLEROSIS [None]
  - PULMONARY EMBOLISM [None]
  - RENAL FAILURE [None]
  - SEPSIS [None]
  - UPPER GASTROINTESTINAL HAEMORRHAGE [None]
  - URINARY TRACT INFECTION [None]
  - UROSEPSIS [None]
